FAERS Safety Report 11159886 (Version 1)
Quarter: 2015Q2

REPORT INFORMATION
  Report Type: Spontaneous
  Country: JP (occurrence: JP)
  Receive Date: 20150603
  Receipt Date: 20150603
  Transmission Date: 20150821
  Serious: Yes (Other)
  Sender: FDA-Public Use
  Company Number: PHJP2015JP008554

PATIENT

DRUGS (2)
  1. VOLTAREN SUP [Suspect]
     Active Substance: DICLOFENAC SODIUM
     Indication: PAIN
     Dosage: UNK
     Route: 054
  2. VOLTAREN [Suspect]
     Active Substance: DICLOFENAC SODIUM
     Indication: ADENOVIRAL CONJUNCTIVITIS
     Dosage: UNK
     Route: 048

REACTIONS (2)
  - Off label use [Unknown]
  - Angina pectoris [Unknown]
